FAERS Safety Report 14763053 (Version 4)
Quarter: 2024Q2

REPORT INFORMATION
  Report Type: Spontaneous
  Country: IT (occurrence: IT)
  Receive Date: 20180416
  Receipt Date: 20240420
  Transmission Date: 20240716
  Serious: Yes (Hospitalization, Other)
  Sender: FDA-Public Use
  Company Number: IT-ACCORD-065959

PATIENT
  Age: 52 Year
  Sex: Male

DRUGS (3)
  1. DOCETAXEL [Suspect]
     Active Substance: DOCETAXEL\DOCETAXEL ANHYDROUS
     Indication: Metastases to lymph nodes
     Dosage: WEEKLY ADMINISTRATIONS IN CYCLES
     Dates: start: 201509, end: 201607
  2. CISPLATIN [Suspect]
     Active Substance: CISPLATIN
     Indication: Chemotherapy
     Dates: start: 201509
  3. DOCETAXEL [Suspect]
     Active Substance: DOCETAXEL\DOCETAXEL ANHYDROUS
     Indication: Metastases to lymph nodes
     Dosage: 2 ONCE-WEEKLY CYCLES
     Dates: start: 201611

REACTIONS (3)
  - Off label use [Unknown]
  - Neurotoxicity [Unknown]
  - Atypical haemolytic uraemic syndrome [Recovering/Resolving]

NARRATIVE: CASE EVENT DATE: 20160701
